FAERS Safety Report 6316885-8 (Version None)
Quarter: 2009Q3

REPORT INFORMATION
  Report Type: 
  Country: None (occurrence: None)
  Receive Date: 20090820
  Receipt Date: 20090807
  Transmission Date: 20100115
  Serious: Yes (Disabling, Other)
  Sender: FDA-Public Use
  Company Number: DE-GENENTECH-287472

PATIENT
  Sex: Male

DRUGS (3)
  1. AVASTIN [Suspect]
     Indication: NON-SMALL CELL LUNG CANCER
     Dosage: 7.5 MG/KG, Q3W
     Route: 042
     Dates: start: 20080801, end: 20090706
  2. CARBOPLATIN [Concomitant]
     Indication: DRUG USE FOR UNKNOWN INDICATION
     Dosage: UNK
     Dates: start: 20080801, end: 20081114
  3. TAXOL [Concomitant]
     Indication: DRUG USE FOR UNKNOWN INDICATION
     Dosage: UNK
     Dates: start: 20080801, end: 20081114

REACTIONS (2)
  - OESOPHAGOBRONCHIAL FISTULA [None]
  - PNEUMONIA ASPIRATION [None]
